FAERS Safety Report 6698099-5 (Version None)
Quarter: 2010Q2

REPORT INFORMATION
  Report Type: 
  Country: None (occurrence: None)
  Receive Date: 20100427
  Receipt Date: 20100318
  Transmission Date: 20101027
  Serious: No
  Sender: FDA-Public Use
  Company Number: US-KINGPHARMUSA00001-K201000320

PATIENT
  Sex: Female
  Weight: 79.365 kg

DRUGS (7)
  1. BICILLIN C-R 900/300 [Suspect]
     Indication: LYME DISEASE
     Dosage: 1,200,000 U, EVERY 3 DAYS TO 5 DAYS
     Route: 030
  2. LEVOXYL [Concomitant]
     Indication: HYPOTHYROIDISM
  3. HYDROCHLOROTHIAZIDE [Concomitant]
     Indication: HYPERTENSION
     Dosage: 25 MG, UNK
  4. FLEXERIL [Concomitant]
  5. METHOCARBAMOL [Concomitant]
  6. CITALOPRAM HYDROBROMIDE [Concomitant]
     Indication: DEPRESSION
  7. METOPROLOL [Concomitant]
     Indication: HYPERTENSION
     Dosage: 1 TAB QAM + 1/2 TAB QHS

REACTIONS (1)
  - DRUG INEFFECTIVE [None]
